FAERS Safety Report 9362864 (Version 2)
Quarter: 2013Q2

REPORT INFORMATION
  Report Type: Spontaneous
  Country: BR (occurrence: BR)
  Receive Date: 20130624
  Receipt Date: 20130625
  Transmission Date: 20140414
  Serious: No
  Sender: FDA-Public Use
  Company Number: BR-SHIRE-ALL1-2013-04068

PATIENT
  Sex: Female

DRUGS (1)
  1. VENVANSE [Suspect]
     Indication: PRODUCT USED FOR UNKNOWN INDICATION
     Dosage: 70 MG, UNKNOWN
     Route: 048

REACTIONS (2)
  - Withdrawal syndrome [Not Recovered/Not Resolved]
  - Off label use [Not Recovered/Not Resolved]
